FAERS Safety Report 21809568 (Version 3)
Quarter: 2023Q1

REPORT INFORMATION
  Report Type: Report from Study
  Country: US (occurrence: US)
  Receive Date: 20230103
  Receipt Date: 20230209
  Transmission Date: 20230418
  Serious: Yes (Hospitalization)
  Sender: FDA-Public Use
  Company Number: US-002147023-NVSC2022US300593

PATIENT
  Sex: Female

DRUGS (3)
  1. ILARIS [Suspect]
     Active Substance: CANAKINUMAB
     Indication: Still^s disease
     Dosage: 150 MG, Q4W
     Route: 058
     Dates: start: 20210901
  2. ILARIS [Suspect]
     Active Substance: CANAKINUMAB
     Dosage: 300 MG, Q4W
     Route: 058
     Dates: start: 20211001
  3. ILARIS [Suspect]
     Active Substance: CANAKINUMAB
     Dosage: UNK (STRENGTH: 300MG/2ML), (ADMINISTERED IN RIGHT UPPER ARM)
     Route: 065
     Dates: start: 20221014

REACTIONS (4)
  - Arthralgia [Recovered/Resolved]
  - Nosocomial infection [Recovered/Resolved]
  - Enterococcal infection [Recovered/Resolved]
  - Drug ineffective [Unknown]
